FAERS Safety Report 11535704 (Version 1)
Quarter: 2015Q3

REPORT INFORMATION
  Report Type: Spontaneous
  Country: IT (occurrence: IT)
  Receive Date: 20150922
  Receipt Date: 20150922
  Transmission Date: 20151125
  Serious: Yes (Other)
  Sender: FDA-Public Use
  Company Number: IT-VIIV HEALTHCARE LIMITED-IT2015GSK130527

PATIENT
  Age: 60 Year
  Sex: Female

DRUGS (3)
  1. CELSENTRI [Suspect]
     Active Substance: MARAVIROC
     Dosage: 150 UNK, UNK
     Dates: start: 201505
  2. ISENTRESS [Suspect]
     Active Substance: RALTEGRAVIR POTASSIUM
     Indication: HIV INFECTION
     Dosage: 1 DF, UNK
     Dates: start: 2013
  3. CELSENTRI [Suspect]
     Active Substance: MARAVIROC
     Indication: HIV INFECTION
     Dosage: 300 MG, BID
     Dates: start: 2013, end: 201505

REACTIONS (6)
  - Dizziness [Recovering/Resolving]
  - Oedema peripheral [Recovering/Resolving]
  - Vomiting [Recovering/Resolving]
  - Nausea [Recovering/Resolving]
  - Abasia [Recovering/Resolving]
  - Transaminases increased [Recovered/Resolved]

NARRATIVE: CASE EVENT DATE: 201509
